FAERS Safety Report 7250622-8 (Version None)
Quarter: 2011Q1

REPORT INFORMATION
  Report Type: 
  Country: None (occurrence: None)
  Receive Date: 20110128
  Receipt Date: 20110119
  Transmission Date: 20110831
  Serious: Yes (Hospitalization, Other)
  Sender: FDA-Public Use
  Company Number: PHHY2011BE04339

PATIENT
  Sex: Female

DRUGS (7)
  1. MYCOPHENOLATE MOFETIL [Suspect]
     Indication: STEM CELL TRANSPLANT
  2. ANTIFUNGAL [Concomitant]
  3. CORTICOSTEROID NOS [Concomitant]
  4. VORICONAZOLE [Concomitant]
  5. IMMUNOSUPPRESSANTS [Concomitant]
  6. FLUDARA [Concomitant]
     Dosage: 3 X30 MG/M^2
  7. CYCLOSPORINE [Suspect]
     Indication: STEM CELL TRANSPLANT

REACTIONS (4)
  - PNEUMONIA STREPTOCOCCAL [None]
  - CHOLECYSTITIS ACUTE [None]
  - CHRONIC GRAFT VERSUS HOST DISEASE [None]
  - PYREXIA [None]
